FAERS Safety Report 10515551 (Version 1)
Quarter: 2014Q4

REPORT INFORMATION
  Report Type: Spontaneous
  Country: US (occurrence: US)
  Receive Date: 20141014
  Receipt Date: 20141014
  Transmission Date: 20150528
  Serious: Yes (Hospitalization)
  Sender: FDA-Public Use
  Company Number: US-JNJFOC-20141004444

PATIENT
  Age: 56 Year
  Sex: Female

DRUGS (1)
  1. REOPRO [Suspect]
     Active Substance: ABCIXIMAB
     Indication: PERCUTANEOUS CORONARY INTERVENTION
     Route: 042
     Dates: start: 20140908, end: 20140908

REACTIONS (3)
  - Platelet count decreased [Unknown]
  - Vascular graft [Unknown]
  - Medication error [Unknown]
